FAERS Safety Report 22129218 (Version 1)
Quarter: 2023Q1

REPORT INFORMATION
  Report Type: Spontaneous
  Country: US (occurrence: US)
  Receive Date: 20230323
  Receipt Date: 20230323
  Transmission Date: 20230417
  Serious: Yes (Other)
  Sender: FDA-Public Use
  Company Number: US-SPECGX-T202300811

PATIENT
  Age: 45 Year
  Sex: Female

DRUGS (1)
  1. METHADONE [Suspect]
     Active Substance: METHADONE HYDROCHLORIDE
     Indication: Product used for unknown indication
     Dosage: UNK
     Route: 065

REACTIONS (9)
  - Hypothyroidism [Unknown]
  - Electrocardiogram QT prolonged [Recovering/Resolving]
  - Torsade de pointes [Unknown]
  - Drug dependence [Unknown]
  - Syncope [Unknown]
  - Bradycardia [Unknown]
  - Seizure [Unknown]
  - Hyperkalaemia [Unknown]
  - Hypermagnesaemia [Unknown]
